FAERS Safety Report 6915939-2 (Version None)
Quarter: 2010Q3

REPORT INFORMATION
  Report Type: 
  Country: None (occurrence: None)
  Receive Date: 20100809
  Receipt Date: 20100809
  Transmission Date: 20110219
  Serious: Yes (Life-Threatening)
  Sender: FDA-Public Use
  Company Number: None

PATIENT
  Age: 57 Year
  Sex: Female
  Weight: 58.9676 kg

DRUGS (1)
  1. NITROFUR 100MG [Suspect]
     Indication: CYSTITIS
     Dosage: 1 EVERY 12 HOURS PO
     Route: 048
     Dates: start: 20100802, end: 20100806

REACTIONS (5)
  - CHEST PAIN [None]
  - CHOKING [None]
  - COUGH [None]
  - DYSPNOEA [None]
  - MUSCULOSKELETAL CHEST PAIN [None]
